FAERS Safety Report 20699191 (Version 3)
Quarter: 2022Q2

REPORT INFORMATION
  Report Type: Spontaneous
  Country: NL (occurrence: NL)
  Receive Date: 20220412
  Receipt Date: 20220617
  Transmission Date: 20220721
  Serious: Yes (Hospitalization, Other)
  Sender: FDA-Public Use
  Company Number: NL-SA-2022SA118239

PATIENT
  Age: 43 Year
  Sex: Male
  Weight: 78 kg

DRUGS (7)
  1. VANDETANIB [Suspect]
     Active Substance: VANDETANIB
     Indication: Medullary thyroid cancer
     Dosage: 200 MG, QD
     Route: 048
     Dates: start: 20210706, end: 202202
  2. DIAZEPAM [Concomitant]
     Active Substance: DIAZEPAM
     Dosage: UNK
     Dates: start: 20181211
  3. OXAZEPAM [Concomitant]
     Active Substance: OXAZEPAM
     Dosage: UNK
     Dates: start: 20201117
  4. LEVOTHYROXINE [Concomitant]
     Active Substance: LEVOTHYROXINE
     Dosage: UNK
     Dates: start: 20201027
  5. CALCIUM CARBONATE [Concomitant]
     Active Substance: CALCIUM CARBONATE
     Dosage: UNK
     Dates: start: 20180927
  6. ALFACALCIDOL CIPLA [Concomitant]
     Dosage: UNK
     Dates: start: 20180927
  7. METHYLPHENIDATE HYDROCHLORIDE BRECKENRIDGE [Concomitant]
     Dosage: UNK
     Dates: start: 20210827

REACTIONS (3)
  - Suicidal ideation [Recovered/Resolved]
  - Suicidal ideation [Unknown]
  - Diarrhoea [Recovered/Resolved]

NARRATIVE: CASE EVENT DATE: 20220224
